FAERS Safety Report 14661607 (Version 3)
Quarter: 2018Q4

REPORT INFORMATION
  Report Type: Spontaneous
  Country: CA (occurrence: CA)
  Receive Date: 20180320
  Receipt Date: 20181120
  Transmission Date: 20190204
  Serious: Yes (Death, Other)
  Sender: FDA-Public Use
  Company Number: CA-PFIZER INC-2018110183

PATIENT
  Age: 75 Year
  Sex: Female

DRUGS (4)
  1. HEPARIN SODIUM. [Suspect]
     Active Substance: HEPARIN SODIUM
     Indication: ANTICOAGULANT THERAPY
     Dosage: UNK (ADEQUATE THERAPEUTIC DOSE)
     Route: 042
  2. HEPARIN SODIUM. [Suspect]
     Active Substance: HEPARIN SODIUM
     Dosage: 800 IU/KG, UNK
     Route: 042
  3. HEPARIN SODIUM. [Suspect]
     Active Substance: HEPARIN SODIUM
     Dosage: 115 IU/KG, UNK (REQUIRED FOR 130 MINUTES OF PUMP TIME)
     Route: 042
  4. NOREPINEPHRINE. [Concomitant]
     Active Substance: NOREPINEPHRINE
     Indication: CARDIAC ARREST
     Dosage: UNK (INFUSION)

REACTIONS (4)
  - Heparin resistance [Unknown]
  - Embolism [Unknown]
  - Heparin-induced thrombocytopenia [Fatal]
  - Cardiac ventricular thrombosis [Unknown]
